FAERS Safety Report 10218937 (Version 1)
Quarter: 2014Q2

REPORT INFORMATION
  Report Type: Spontaneous
  Country: US (occurrence: None)
  Receive Date: 20140604
  Receipt Date: 20140604
  Transmission Date: 20141212
  Serious: Yes (Other)
  Sender: FDA-Public Use
  Company Number: None

PATIENT
  Age: 22 Year
  Sex: Female

DRUGS (2)
  1. BUPROPION XL [Suspect]
     Indication: ANXIETY
     Dosage: 1 PILL, QD, ORAL
     Route: 048
     Dates: start: 20140515, end: 20140603
  2. BUPROPION XL [Suspect]
     Indication: DEPRESSION
     Dosage: 1 PILL, QD, ORAL
     Route: 048
     Dates: start: 20140515, end: 20140603

REACTIONS (5)
  - Mood swings [None]
  - Crying [None]
  - Disturbance in attention [None]
  - Emotional disorder [None]
  - Product substitution issue [None]
